FAERS Safety Report 21974686 (Version 1)
Quarter: 2023Q1

REPORT INFORMATION
  Report Type: Spontaneous
  Country: US (occurrence: None)
  Receive Date: 20230208
  Receipt Date: 20230208
  Transmission Date: 20230418
  Serious: Yes (Other)
  Sender: FDA-Public Use
  Company Number: None

PATIENT
  Age: 29 Year
  Sex: Male
  Weight: 65.25 kg

DRUGS (1)
  1. OLANZAPINE [Suspect]
     Active Substance: OLANZAPINE
     Indication: Psychotic disorder
     Dosage: FREQUENCY : AT BEDTIME;?
     Route: 048

REACTIONS (4)
  - Catatonia [None]
  - Neutropenia [None]
  - Unresponsive to stimuli [None]
  - White blood cell count decreased [None]

NARRATIVE: CASE EVENT DATE: 20221109
